FAERS Safety Report 6252887-8 (Version None)
Quarter: 2009Q2

REPORT INFORMATION
  Report Type: 
  Country: None (occurrence: None)
  Receive Date: 20090629
  Receipt Date: 20090629
  Transmission Date: 20091009
  Serious: Yes (Other)
  Sender: FDA-Public Use
  Company Number: None

PATIENT
  Sex: Female
  Weight: 113.3993 kg

DRUGS (2)
  1. ZICAM NASAL SPRAY [Suspect]
     Indication: NASOPHARYNGITIS
     Dosage: AS NEEDED
     Dates: start: 20060101, end: 20081201
  2. ZICAM SWABS [Suspect]
     Indication: NASOPHARYNGITIS
     Dosage: AS NEEDED
     Dates: start: 20070101, end: 20080301

REACTIONS (1)
  - ANOSMIA [None]
